FAERS Safety Report 9235421 (Version 2)
Quarter: 2013Q2

REPORT INFORMATION
  Report Type: Report from Study
  Country: US (occurrence: US)
  Receive Date: 20130417
  Receipt Date: 20130417
  Transmission Date: 20140414
  Serious: Yes (Life-Threatening, Hospitalization)
  Sender: FDA-Public Use
  Company Number: US-009507513-1211USA008644

PATIENT
  Age: 63 Year
  Sex: Female
  Weight: 65 kg

DRUGS (8)
  1. BLINDED CARBOPLATIN [Suspect]
     Indication: NON-SMALL CELL LUNG CANCER
     Dosage: UNK
     Route: 048
     Dates: start: 20121031, end: 20121104
  2. BLINDED PACLITAXEL [Suspect]
     Indication: NON-SMALL CELL LUNG CANCER
     Dosage: UNK
     Route: 048
     Dates: start: 20121031, end: 20121104
  3. BLINDED PLACEBO [Suspect]
     Indication: NON-SMALL CELL LUNG CANCER
     Dosage: UNK
     Route: 048
     Dates: start: 20121031, end: 20121104
  4. BLINDED POST TRIAL THERAPY [Suspect]
     Indication: NON-SMALL CELL LUNG CANCER
     Dosage: UNK
     Route: 048
     Dates: start: 20121031, end: 20121104
  5. BLINDED PRE TRIAL THERAPY [Suspect]
     Indication: NON-SMALL CELL LUNG CANCER
     Dosage: UNK
     Route: 048
     Dates: start: 20121031, end: 20121104
  6. BLINDED VORINOSTAT [Suspect]
     Indication: NON-SMALL CELL LUNG CANCER
     Dosage: UNK
     Route: 048
     Dates: start: 20121031, end: 20121104
  7. PACLITAXEL [Suspect]
     Indication: NON-SMALL CELL LUNG CANCER
     Dosage: 200 MG/M2 OVER 3 HOURS ON DAY 0
     Route: 042
     Dates: start: 20121102, end: 20121102
  8. CARBOPLATIN [Suspect]
     Indication: NON-SMALL CELL LUNG CANCER
     Dosage: 6 MG/ML IV OVER 30 MINUTES ON DAY 0
     Route: 042
     Dates: start: 20121102, end: 20121102

REACTIONS (5)
  - Lymphocyte count decreased [Recovered/Resolved with Sequelae]
  - Dehydration [Recovered/Resolved with Sequelae]
  - Embolism [Recovered/Resolved with Sequelae]
  - Neutrophil count decreased [Recovered/Resolved with Sequelae]
  - White blood cell count decreased [Recovered/Resolved with Sequelae]
